FAERS Safety Report 7861360 (Version 7)
Quarter: 2014Q4

REPORT INFORMATION
  Report Type: Spontaneous
  Country: US (occurrence: US)
  Receive Date: 20110317
  Receipt Date: 20141112
  Transmission Date: 20150529
  Serious: Yes (Death, Hospitalization, Other)
  Sender: FDA-Public Use
  Company Number: US-B.I. PHARMACEUTICALS,INC./RIDGEFIELD-2011-BP-06412BP

PATIENT
  Age: 56 Year
  Sex: Male
  Weight: 95.25 kg

DRUGS (10)
  1. BETAMETHASONE [Concomitant]
     Active Substance: BETAMETHASONE
     Indication: PRODUCT USED FOR UNKNOWN INDICATION
     Route: 065
     Dates: start: 200211, end: 201109
  2. CLOTRIMAZOLE. [Concomitant]
     Active Substance: CLOTRIMAZOLE
     Indication: PRODUCT USED FOR UNKNOWN INDICATION
     Route: 065
     Dates: start: 200211, end: 201109
  3. PRADAXA [Suspect]
     Active Substance: DABIGATRAN ETEXILATE MESYLATE
     Indication: ATRIAL FIBRILLATION
     Dosage: 300 MG
     Route: 048
     Dates: start: 20110128, end: 20120827
  4. PRADAXA [Suspect]
     Active Substance: DABIGATRAN ETEXILATE MESYLATE
     Indication: CEREBROVASCULAR ACCIDENT
  5. TOPROL XL [Concomitant]
     Active Substance: METOPROLOL SUCCINATE
     Indication: HYPERTENSION
     Dosage: 100 MG
     Route: 048
     Dates: start: 199909, end: 201207
  6. METFORMIN [Concomitant]
     Active Substance: METFORMIN HYDROCHLORIDE
     Indication: BLOOD GLUCOSE INCREASED
     Dosage: 1000 MG
     Route: 048
     Dates: start: 200207, end: 201203
  7. LEXAPRO [Concomitant]
     Active Substance: ESCITALOPRAM OXALATE
     Indication: ANXIETY
     Dosage: 10 MG
     Route: 048
  8. LIPITOR [Concomitant]
     Active Substance: ATORVASTATIN CALCIUM
     Indication: CEREBROVASCULAR ACCIDENT
     Dosage: 80 MG
     Route: 048
     Dates: start: 201204, end: 201206
  9. ENALAPRIL [Concomitant]
     Active Substance: ENALAPRIL
     Indication: HYPERTENSION
     Dosage: 25 MG
     Route: 048
     Dates: start: 201012, end: 201203
  10. LASIX [Concomitant]
     Active Substance: FUROSEMIDE
     Indication: FLUID RETENTION
     Dosage: 20 MG
     Route: 048
     Dates: start: 200212, end: 201207

REACTIONS (35)
  - Pneumonia [Unknown]
  - Leukocytosis [Recovered/Resolved]
  - Abdominal distension [Unknown]
  - Urinary tract infection bacterial [Unknown]
  - Pyrexia [Recovered/Resolved]
  - Cardiac failure congestive [Unknown]
  - Synovial fluid red blood cells positive [Unknown]
  - Hypoaesthesia oral [Unknown]
  - Haemorrhage intracranial [Fatal]
  - Cardiac arrest [Fatal]
  - Acute respiratory failure [Fatal]
  - Coma [Unknown]
  - Rotator cuff syndrome [Unknown]
  - Constipation [Unknown]
  - Osteoarthritis [Unknown]
  - Endotracheal intubation complication [Unknown]
  - Tachypnoea [Unknown]
  - Coagulopathy [Recovered/Resolved]
  - Atrial fibrillation [Unknown]
  - Pulmonary oedema [Not Recovered/Not Resolved]
  - Vision blurred [Not Recovered/Not Resolved]
  - Clostridium difficile colitis [Recovered/Resolved]
  - Hypertension [Unknown]
  - Liver function test abnormal [Unknown]
  - Metabolic acidosis [Unknown]
  - Pleural effusion [Unknown]
  - Subcutaneous abscess [Unknown]
  - Decubitus ulcer [Unknown]
  - Ischaemic stroke [Fatal]
  - Acute kidney injury [Recovered/Resolved]
  - Hepatic steatosis [Unknown]
  - Shock [Unknown]
  - Cellulitis [Unknown]
  - Hyperglycaemia [Unknown]
  - Tachycardia [Unknown]

NARRATIVE: CASE EVENT DATE: 2011
